FAERS Safety Report 8734083 (Version 3)
Quarter: 2012Q4

REPORT INFORMATION
  Report Type: Report from Study
  Country: GB (occurrence: GB)
  Receive Date: 20120821
  Receipt Date: 20121226
  Transmission Date: 20130627
  Serious: Yes (Other)
  Sender: FDA-Public Use
  Company Number: GB-ROCHE-1102906

PATIENT
  Age: 48 Year
  Sex: Male
  Weight: 117.9 kg

DRUGS (4)
  1. BEVACIZUMAB [Suspect]
     Indication: COLON CANCER
     Dosage: Most recent dose prior to SAE 28/Sep/2006
     Route: 042
     Dates: start: 20060504
  2. BEVACIZUMAB [Suspect]
     Indication: RECTAL CANCER
  3. CAPECITABINE [Suspect]
     Indication: COLON CANCER
     Dosage: Most recent dose prior to SAe 07/Sep/2006
     Route: 048
     Dates: start: 20060504
  4. CAPECITABINE [Suspect]
     Indication: RECTAL CANCER

REACTIONS (1)
  - Rectal neoplasm [Not Recovered/Not Resolved]
